FAERS Safety Report 25524971 (Version 1)
Quarter: 2025Q3

REPORT INFORMATION
  Report Type: Spontaneous
  Country: EU (occurrence: EU)
  Receive Date: 20250707
  Receipt Date: 20250707
  Transmission Date: 20251020
  Serious: Yes (Other)
  Sender: CHEPLAPHARM
  Company Number: EU-CH-2025-0004

PATIENT
  Age: 27 Year
  Sex: Male

DRUGS (3)
  1. OLANZAPINE [Suspect]
     Active Substance: OLANZAPINE
  2. QUETIAPINE [Suspect]
     Active Substance: QUETIAPINE
     Indication: Bipolar disorder
  3. BUPROPION [Suspect]
     Active Substance: BUPROPION
     Indication: Bipolar disorder

REACTIONS (3)
  - Rhabdomyolysis [Unknown]
  - Myopathy toxic [Unknown]
  - Myopathy [Unknown]
